FAERS Safety Report 5493445-2 (Version None)
Quarter: 2007Q4

REPORT INFORMATION
  Report Type: 
  Country: None (occurrence: None)
  Receive Date: 20071019
  Receipt Date: 20071005
  Transmission Date: 20080405
  Serious: Yes (Life-Threatening, Hospitalization)
  Sender: FDA-Public Use
  Company Number: 162484ISR

PATIENT
  Age: 68 Year
  Sex: Male

DRUGS (8)
  1. CISPLATIN [Suspect]
     Indication: SMALL CELL LUNG CANCER STAGE UNSPECIFIED
     Dosage: 140 MG (80 MG/M02); INTRAVENOUS (NOT OTHERWISE SPECIFIED)
     Route: 042
     Dates: start: 20070508
  2. IRINOTECAN HCL [Suspect]
     Indication: SMALL CELL LUNG CANCER STAGE UNSPECIFIED
     Dosage: 65 MG/M2; INTRAVENOUS (NOT OTHERWISE SPECIFIED)
     Route: 042
     Dates: start: 20070508
  3. FOSICOMP (FOSINOPRIL SODIUM, HYDROCHLOROTHIAZIDE) [Concomitant]
  4. DEXAMETHASONE 0.5MG TAB [Concomitant]
  5. ESOMEPRAZOLE MAGNESIUM [Concomitant]
  6. HALOPERIDOL [Concomitant]
  7. AMIODARONE HYDROCHLORIDE [Concomitant]
  8. SALBUTAMOL [Concomitant]

REACTIONS (4)
  - DISSEMINATED INTRAVASCULAR COAGULATION [None]
  - ECG SIGNS OF MYOCARDIAL ISCHAEMIA [None]
  - SEPTIC SHOCK [None]
  - TACHYCARDIA [None]
